FAERS Safety Report 15095470 (Version 1)
Quarter: 2018Q3

REPORT INFORMATION
  Report Type: Spontaneous
  Country: US (occurrence: US)
  Receive Date: 20180702
  Receipt Date: 20180702
  Transmission Date: 20181010
  Serious: Yes (Life-Threatening, Other)
  Sender: FDA-Public Use
  Company Number: US-BAUSCH-BL-2018-017924

PATIENT
  Age: 60 Year
  Sex: Male

DRUGS (4)
  1. LENALIDOMIDE [Suspect]
     Active Substance: LENALIDOMIDE
     Indication: MANTLE CELL LYMPHOMA
     Dosage: DAYS 1?21, 1 CYCLICAL
     Route: 048
  2. BORTEZOMIB. [Suspect]
     Active Substance: BORTEZOMIB
     Indication: MANTLE CELL LYMPHOMA
     Dosage: DAYS 1, 8, 15, 22. 1.3 MG/M2 PER 3 CYCLICAL
     Route: 058
  3. RITUXIMAB. [Suspect]
     Active Substance: RITUXIMAB
     Indication: MANTLE CELL LYMPHOMA
     Dosage: 375 MG/M2 PER 3 CYCLICAL
     Route: 042
  4. DEXAMETHASONE. [Suspect]
     Active Substance: DEXAMETHASONE
     Indication: MANTLE CELL LYMPHOMA
     Dosage: DAYS 1, 8, 15, 22. 3 CYCLICAL
     Route: 065

REACTIONS (2)
  - Thrombocytopenia [Unknown]
  - Diarrhoea [Unknown]
